FAERS Safety Report 17635554 (Version 1)
Quarter: 2020Q2

REPORT INFORMATION
  Report Type: Spontaneous
  Country: KW (occurrence: KW)
  Receive Date: 20200407
  Receipt Date: 20200407
  Transmission Date: 20200713
  Serious: Yes (Other)
  Sender: FDA-Public Use
  Company Number: KW-SUN PHARMACEUTICAL INDUSTRIES LTD-2020RR-243008

PATIENT
  Age: 15 Year
  Sex: Male

DRUGS (3)
  1. RISPERIDONE. [Suspect]
     Active Substance: RISPERIDONE
     Indication: SEXUALLY INAPPROPRIATE BEHAVIOUR
     Dosage: UNK
     Route: 065
  2. CLONIDINE. [Suspect]
     Active Substance: CLONIDINE
     Indication: SEXUALLY INAPPROPRIATE BEHAVIOUR
     Dosage: UNK
     Route: 065
  3. ARIPIPRAZOLE. [Suspect]
     Active Substance: ARIPIPRAZOLE
     Indication: SEXUALLY INAPPROPRIATE BEHAVIOUR
     Dosage: 15 MILLIGRAM, DAILY
     Route: 065

REACTIONS (4)
  - Extrapyramidal disorder [Unknown]
  - Hypotension [Unknown]
  - Bradycardia [Unknown]
  - Treatment failure [Unknown]
